FAERS Safety Report 9106109 (Version 1)
Quarter: 2013Q1

REPORT INFORMATION
  Report Type: Spontaneous
  Country: GB (occurrence: GB)
  Receive Date: 20130221
  Receipt Date: 20130221
  Transmission Date: 20140127
  Serious: Yes (Other)
  Sender: FDA-Public Use
  Company Number: GB-ROXANE LABORATORIES, INC.-2013-RO-00257RO

PATIENT
  Age: 9 Day
  Sex: Female
  Weight: 3.6 kg

DRUGS (2)
  1. DIGOXIN [Suspect]
     Indication: SUPRAVENTRICULAR TACHYCARDIA
  2. SOTALOL [Suspect]
     Indication: SUPRAVENTRICULAR TACHYCARDIA

REACTIONS (1)
  - Supraventricular tachycardia [Not Recovered/Not Resolved]
